FAERS Safety Report 6519257-6 (Version None)
Quarter: 2009Q4

REPORT INFORMATION
  Report Type: 
  Country: None (occurrence: None)
  Receive Date: 20091228
  Receipt Date: 20091217
  Transmission Date: 20100525
  Serious: Yes (Hospitalization, Other)
  Sender: FDA-Public Use
  Company Number: JP-JNJFOC-20091205784

PATIENT
  Age: 68 Year
  Sex: Female

DRUGS (4)
  1. REMICADE [Suspect]
     Indication: RHEUMATOID ARTHRITIS
     Route: 042
  2. VOLTAREN [Concomitant]
     Route: 048
  3. GASTER D [Concomitant]
     Route: 048
  4. MUCOSTA [Concomitant]
     Route: 048

REACTIONS (2)
  - MOUTH HAEMORRHAGE [None]
  - PLATELET COUNT DECREASED [None]
